FAERS Safety Report 24546287 (Version 1)
Quarter: 2024Q4

REPORT INFORMATION
  Report Type: Spontaneous
  Country: DE (occurrence: DE)
  Receive Date: 20241024
  Receipt Date: 20241024
  Transmission Date: 20250114
  Serious: Yes (Other)
  Sender: GUERBET
  Company Number: DE-GUERBET / GUERBET GMBH-DE-20240047

PATIENT
  Age: 51 Year
  Sex: Female

DRUGS (2)
  1. LIPIODOL [Suspect]
     Active Substance: ETHIODIZED OIL
     Indication: Therapeutic embolisation
     Dosage: APPROXIMATELY 4 ML OF LIPIODOL MIXED WITH GLUBRAN 2 (BUTYL 2-CYANOACRYLATE) TISSUE GLUE (FOR INTERNA
     Route: 013
     Dates: start: 20241002, end: 20241002
  2. DEVICE [Suspect]
     Active Substance: DEVICE
     Indication: Therapeutic embolisation
     Dosage: APPROXIMATELY 4 ML OF LIPIODOL MIXED WITH GLUBRAN 2 (BUTYL 2-CYANOACRYLATE) TISSUE GLUE (FOR INTERNA
     Route: 013
     Dates: start: 20241002, end: 20241002

REACTIONS (4)
  - Off label use [Unknown]
  - Drug ineffective [Unknown]
  - Tissue injury [Unknown]
  - Renal embolism [Unknown]

NARRATIVE: CASE EVENT DATE: 20241002
